FAERS Safety Report 18858753 (Version 1)
Quarter: 2021Q1

REPORT INFORMATION
  Report Type: Spontaneous
  Country: US (occurrence: US)
  Receive Date: 20210206
  Receipt Date: 20210206
  Transmission Date: 20210420
  Serious: No
  Sender: FDA-Public Use
  Company Number: None

PATIENT
  Age: 80 Year
  Sex: Female
  Weight: 45.9 kg

DRUGS (17)
  1. AZITHROMYCIN ANHYDROUS. [Concomitant]
     Active Substance: AZITHROMYCIN ANHYDROUS
  2. BACLOFEN. [Concomitant]
     Active Substance: BACLOFEN
  3. SILVER SULFADIAZENE [Concomitant]
     Active Substance: SILVER SULFADIAZINE
  4. VITAMIN D3 [Concomitant]
     Active Substance: CHOLECALCIFEROL
  5. CALCIUM + D [Concomitant]
     Active Substance: CALCIUM\VITAMIN D
  6. LIPITOR [Concomitant]
     Active Substance: ATORVASTATIN CALCIUM
  7. POTASSIUM CHLORIDE. [Concomitant]
     Active Substance: POTASSIUM CHLORIDE
  8. SODIUM CHLORIDE. [Concomitant]
     Active Substance: SODIUM CHLORIDE
  9. CAPECITABINE. [Suspect]
     Active Substance: CAPECITABINE
     Indication: BREAST CANCER
     Dosage: ?          OTHER FREQUENCY:BID 7 ON/7 OFF;?
     Route: 048
     Dates: start: 20201124, end: 20210206
  10. ASPIRIN. [Concomitant]
     Active Substance: ASPIRIN
  11. FOLIC ACID. [Concomitant]
     Active Substance: FOLIC ACID
  12. TRIAMCINOLONE [Concomitant]
     Active Substance: TRIAMCINOLONE
  13. XGEVA [Concomitant]
     Active Substance: DENOSUMAB
  14. DIPHENOXYLATE/ATROPINE [Concomitant]
     Active Substance: ATROPINE\DIPHENOXYLATE
  15. BENZONATATE. [Concomitant]
     Active Substance: BENZONATATE
  16. BETAMETHASONE. [Concomitant]
     Active Substance: BETAMETHASONE
  17. CORLANOR [Concomitant]
     Active Substance: IVABRADINE HYDROCHLORIDE

REACTIONS (3)
  - Joint stiffness [None]
  - Skin discolouration [None]
  - Skin exfoliation [None]

NARRATIVE: CASE EVENT DATE: 20210206
